FAERS Safety Report 9698806 (Version 2)
Quarter: 2014Q1

REPORT INFORMATION
  Report Type: Spontaneous
  Country: IT (occurrence: IT)
  Receive Date: 20131120
  Receipt Date: 20140116
  Transmission Date: 20141002
  Serious: Yes (Hospitalization)
  Sender: FDA-Public Use
  Company Number: IT-ABBVIE-13P-083-1171206-00

PATIENT
  Age: 16 Year
  Sex: Female
  Weight: 64 kg

DRUGS (4)
  1. KLACID [Suspect]
     Indication: BRONCHOPNEUMONIA
     Dosage: FORM STRENGTH: 250 MG/5 ML
     Route: 048
     Dates: start: 20131101, end: 20131104
  2. KLACID [Suspect]
     Indication: BRONCHOPNEUMONIA
     Dosage: FORM STRENGTH: 500 MG/10 ML
     Route: 042
     Dates: start: 20131105, end: 20131106
  3. UNASYN [Concomitant]
     Indication: BRONCHOPNEUMONIA
     Dosage: 500 MG + 1 G/3.2 ML
     Dates: start: 20131101, end: 20131108
  4. FIDATO [Concomitant]
     Indication: BRONCHOPNEUMONIA
     Dosage: FORM STRENGTH:  1 G/10 ML
     Dates: start: 20131103, end: 20131108

REACTIONS (1)
  - Aphthous stomatitis [Recovering/Resolving]
